FAERS Safety Report 11558423 (Version 1)
Quarter: 2015Q3

REPORT INFORMATION
  Report Type: Spontaneous
  Country: US (occurrence: US)
  Receive Date: 20150928
  Receipt Date: 20150928
  Transmission Date: 20151125
  Serious: No
  Sender: FDA-Public Use
  Company Number: US-PFIZER INC-2015314122

PATIENT
  Age: 72 Year
  Sex: Female
  Weight: 57 kg

DRUGS (1)
  1. LYRICA [Suspect]
     Active Substance: PREGABALIN
     Indication: SCIATIC NERVE NEUROPATHY
     Dosage: 25 MG BEFORE BEDTIME 1 CAPSULE BY MOUTH
     Route: 048
     Dates: start: 20150828

REACTIONS (2)
  - Hypersensitivity [Not Recovered/Not Resolved]
  - Eustachian tube disorder [Not Recovered/Not Resolved]
